FAERS Safety Report 8312756-6 (Version None)
Quarter: 2012Q2

REPORT INFORMATION
  Report Type: 
  Country: None (occurrence: None)
  Receive Date: 20120426
  Receipt Date: 20120417
  Transmission Date: 20120825
  Serious: Yes (Hospitalization, Other)
  Sender: FDA-Public Use
  Company Number: US-AMGEN-USASP2012024564

PATIENT
  Age: 60 Year
  Sex: Male

DRUGS (1)
  1. ENBREL [Suspect]
     Indication: PSORIASIS
     Dosage: 50 MG, QWK
     Dates: start: 20071119

REACTIONS (9)
  - LUMBAR SPINAL STENOSIS [None]
  - NERVE ROOT COMPRESSION [None]
  - PERONEAL NERVE PALSY [None]
  - MUSCLE ENZYME INCREASED [None]
  - PERONEAL MUSCULAR ATROPHY [None]
  - NERVE DEGENERATION [None]
  - DRY THROAT [None]
  - THROAT IRRITATION [None]
  - UPPER-AIRWAY COUGH SYNDROME [None]
